FAERS Safety Report 4315975-9 (Version None)
Quarter: 2004Q1

REPORT INFORMATION
  Report Type: 
  Country: None (occurrence: None)
  Receive Date: 20040310
  Receipt Date: 20040225
  Transmission Date: 20041129
  Serious: Yes (Other)
  Sender: FDA-Public Use
  Company Number: 2004200941LT

PATIENT
  Age: 70 Year
  Sex: Male

DRUGS (1)
  1. CELEBREX [Suspect]
     Indication: ANKYLOSING SPONDYLITIS
     Dosage: 100 MG, UNK, ORAL
     Route: 048
     Dates: start: 20030101

REACTIONS (2)
  - ARRHYTHMIA [None]
  - MYOCARDIAL ISCHAEMIA [None]
